FAERS Safety Report 6563776-3 (Version None)
Quarter: 2010Q1

REPORT INFORMATION
  Report Type: 
  Country: None (occurrence: None)
  Receive Date: 20100130
  Receipt Date: 20091229
  Transmission Date: 20100710
  Serious: No
  Sender: FDA-Public Use
  Company Number: US-ABBOTT-09P-163-0616746-00

PATIENT
  Sex: Male
  Weight: 108.96 kg

DRUGS (1)
  1. HUMIRA [Suspect]
     Indication: RHEUMATOID ARTHRITIS
     Dates: start: 20090510

REACTIONS (5)
  - AXILLARY MASS [None]
  - ERYTHEMA [None]
  - INJECTION SITE PAIN [None]
  - PAIN [None]
  - PRURITUS [None]
